FAERS Safety Report 5895953-9 (Version None)
Quarter: 2008Q3

REPORT INFORMATION
  Report Type: 
  Country: None (occurrence: None)
  Receive Date: 20080924
  Receipt Date: 20080922
  Transmission Date: 20090109
  Serious: Yes (Hospitalization)
  Sender: FDA-Public Use
  Company Number: US-B.I. PHARMACEUTICALS,INC./RIDGEFIELD-2008-BP-11652BP

PATIENT
  Sex: Male
  Weight: 102 kg

DRUGS (5)
  1. TIOTROPIUM RESPIMAT (BLIND) [Suspect]
     Indication: CHRONIC OBSTRUCTIVE PULMONARY DISEASE
     Route: 055
     Dates: start: 20070404, end: 20080311
  2. PLACEBO RESPIMAT (BLIND) [Suspect]
     Indication: CHRONIC OBSTRUCTIVE PULMONARY DISEASE
     Route: 055
     Dates: start: 20070404, end: 20080311
  3. PREDNISONE [Suspect]
     Indication: CHRONIC OBSTRUCTIVE PULMONARY DISEASE
     Dosage: 30MG
     Route: 048
     Dates: start: 20080303, end: 20080314
  4. METFORMIN HCL [Concomitant]
     Indication: DIABETES MELLITUS
     Dosage: 2000MG
     Route: 048
     Dates: start: 20070701
  5. COVERSYL [Concomitant]
     Indication: DIABETES MELLITUS
     Dosage: 8MG
     Route: 048
     Dates: start: 20030101

REACTIONS (4)
  - BLOOD ALCOHOL INCREASED [None]
  - BLOOD GLUCOSE INCREASED [None]
  - ROAD TRAFFIC ACCIDENT [None]
  - SYNCOPE [None]
